FAERS Safety Report 12261689 (Version 1)
Quarter: 2016Q2

REPORT INFORMATION
  Report Type: Spontaneous
  Country: AU (occurrence: AU)
  Receive Date: 20160413
  Receipt Date: 20160413
  Transmission Date: 20160815
  Serious: Yes (Other)
  Sender: FDA-Public Use
  Company Number: AU-CELGENEUS-AUS-2016037629

PATIENT
  Age: 62 Year
  Sex: Male

DRUGS (1)
  1. VIDAZA [Suspect]
     Active Substance: AZACITIDINE
     Indication: CHRONIC MYELOMONOCYTIC LEUKAEMIA
     Dosage: 145 MILLIGRAM
     Route: 065
     Dates: start: 20150903

REACTIONS (2)
  - Inflammation of wound [Unknown]
  - Throat irritation [Unknown]

NARRATIVE: CASE EVENT DATE: 20160324
